FAERS Safety Report 5072467-X (Version None)
Quarter: 2006Q3

REPORT INFORMATION
  Report Type: 
  Country: None (occurrence: None)
  Receive Date: 20060807
  Receipt Date: 20060726
  Transmission Date: 20061208
  Serious: Yes (Life-Threatening, Hospitalization, Other)
  Sender: FDA-Public Use
  Company Number: DE-GILEAD-2006-0009940

PATIENT
  Sex: Female
  Weight: 57 kg

DRUGS (7)
  1. TRUVADA [Suspect]
     Indication: HIV INFECTION
     Route: 048
     Dates: start: 20060317, end: 20060720
  2. KALETRA [Concomitant]
     Indication: HIV INFECTION
     Route: 048
     Dates: start: 20060517, end: 20060725
  3. CLARITHROMYCIN [Concomitant]
     Indication: ATYPICAL MYCOBACTERIAL INFECTION
     Route: 048
     Dates: start: 20060505, end: 20060725
  4. RIFABUTIN [Concomitant]
     Indication: ATYPICAL MYCOBACTERIAL INFECTION
     Dates: start: 20060505, end: 20060720
  5. MYAMBUTOL [Concomitant]
     Indication: ATYPICAL MYCOBACTERIAL INFECTION
     Route: 048
     Dates: start: 20060505, end: 20060725
  6. LEDERFOLAT [Concomitant]
     Indication: ATYPICAL MYCOBACTERIAL INFECTION
     Route: 048
     Dates: start: 20060505, end: 20060725
  7. COTRIM [Concomitant]
     Indication: ANTIBIOTIC PROPHYLAXIS
     Route: 048
     Dates: start: 20060317, end: 20060725

REACTIONS (5)
  - ABDOMINAL PAIN [None]
  - ATYPICAL MYCOBACTERIAL INFECTION [None]
  - BONE PAIN [None]
  - MYALGIA [None]
  - RENAL FAILURE [None]
